FAERS Safety Report 13669601 (Version 1)
Quarter: 2017Q2

REPORT INFORMATION
  Report Type: Spontaneous
  Country: US (occurrence: US)
  Receive Date: 20170620
  Receipt Date: 20170620
  Transmission Date: 20170830
  Serious: Yes (Other)
  Sender: FDA-Public Use
  Company Number: US-AMGEN-USASP2017089840

PATIENT
  Age: 44 Year
  Sex: Female

DRUGS (1)
  1. ENBREL [Suspect]
     Active Substance: ETANERCEPT
     Indication: RHEUMATOID ARTHRITIS
     Dosage: 50 MG, QWK
     Route: 065
     Dates: start: 201609

REACTIONS (13)
  - Menstruation delayed [Unknown]
  - Myalgia [Unknown]
  - Joint swelling [Unknown]
  - Knee arthroplasty [Unknown]
  - Drug dose omission [Unknown]
  - Drug effect incomplete [Unknown]
  - Cough [Unknown]
  - Lip swelling [Unknown]
  - Pyrexia [Unknown]
  - Wrong technique in product usage process [Unknown]
  - Eye swelling [Unknown]
  - Menstrual disorder [Unknown]
  - Peripheral swelling [Unknown]

NARRATIVE: CASE EVENT DATE: 20161129
